FAERS Safety Report 21949343 (Version 1)
Quarter: 2023Q1

REPORT INFORMATION
  Report Type: Spontaneous
  Country: US (occurrence: None)
  Receive Date: 20230202
  Receipt Date: 20230202
  Transmission Date: 20230417
  Serious: Yes (Hospitalization, Other)
  Sender: FDA-Public Use
  Company Number: None

PATIENT
  Sex: Male

DRUGS (1)
  1. DIMETHYL FUMARATE [Suspect]
     Active Substance: DIMETHYL FUMARATE
     Dosage: FREQUENCY : DAILY;?
     Route: 048

REACTIONS (5)
  - Abdominal pain upper [None]
  - Abdominal distension [None]
  - Abdominal pain [None]
  - Flushing [None]
  - Intentional dose omission [None]
